FAERS Safety Report 16958502 (Version 1)
Quarter: 2019Q4

REPORT INFORMATION
  Report Type: Spontaneous
  Country: CN (occurrence: CN)
  Receive Date: 20191024
  Receipt Date: 20191024
  Transmission Date: 20200122
  Serious: Yes (Other)
  Sender: FDA-Public Use
  Company Number: CN-BAYER-2019-190573

PATIENT
  Age: 65 Year
  Sex: Male
  Weight: 55 kg

DRUGS (11)
  1. OPDIVO [Suspect]
     Active Substance: NIVOLUMAB
     Indication: SMALL INTESTINE CARCINOMA
     Dosage: 80 MG, QD
     Route: 041
     Dates: start: 20190905, end: 20190905
  2. OPDIVO [Suspect]
     Active Substance: NIVOLUMAB
     Indication: SMALL INTESTINE CARCINOMA
     Dosage: 100 MG, QD
     Route: 041
     Dates: start: 20190821, end: 20190821
  3. OPDIVO [Suspect]
     Active Substance: NIVOLUMAB
     Indication: SMALL INTESTINE CARCINOMA
     Dosage: 100 MG, QD
     Route: 041
     Dates: start: 20190905, end: 20190905
  4. STIVARGA [Suspect]
     Active Substance: REGORAFENIB
     Indication: SMALL INTESTINE CARCINOMA
     Dosage: 80 MG, QD
     Route: 048
     Dates: start: 20190807, end: 20190828
  5. STIVARGA [Suspect]
     Active Substance: REGORAFENIB
     Indication: SMALL INTESTINE CARCINOMA
     Dosage: UNK
     Dates: start: 20190724
  6. OPDIVO [Suspect]
     Active Substance: NIVOLUMAB
     Indication: SMALL INTESTINE CARCINOMA
     Dosage: 80 MG, QD
     Route: 041
     Dates: start: 20190807, end: 20190807
  7. STIVARGA [Suspect]
     Active Substance: REGORAFENIB
     Indication: SMALL INTESTINE CARCINOMA
     Dosage: 80 MG, QD
     Route: 048
     Dates: start: 20190904, end: 20190925
  8. OPDIVO [Suspect]
     Active Substance: NIVOLUMAB
     Indication: SMALL INTESTINE CARCINOMA
     Dosage: UNK
     Dates: start: 20190724
  9. OPDIVO [Suspect]
     Active Substance: NIVOLUMAB
     Indication: SMALL INTESTINE CARCINOMA
     Dosage: 100 MG, QD
     Route: 041
     Dates: start: 20190807, end: 20190807
  10. OPDIVO [Suspect]
     Active Substance: NIVOLUMAB
     Indication: SMALL INTESTINE CARCINOMA
     Dosage: 160 MG, QD
     Route: 041
     Dates: start: 20190919, end: 20190919
  11. OPDIVO [Suspect]
     Active Substance: NIVOLUMAB
     Indication: SMALL INTESTINE CARCINOMA
     Dosage: 80 MG, QD
     Route: 041
     Dates: start: 20190821, end: 20190821

REACTIONS (6)
  - Hepatic function abnormal [Unknown]
  - Blood corticotrophin increased [Unknown]
  - Metastases to liver [Unknown]
  - Off label use [None]
  - Product use in unapproved indication [None]
  - Weight decreased [Unknown]

NARRATIVE: CASE EVENT DATE: 2019
